FAERS Safety Report 20299909 (Version 1)
Quarter: 2022Q1

REPORT INFORMATION
  Report Type: Spontaneous
  Country: US (occurrence: None)
  Receive Date: 20220105
  Receipt Date: 20220105
  Transmission Date: 20220423
  Serious: Yes (Hospitalization, Disabling)
  Sender: FDA-Public Use
  Company Number: None

PATIENT
  Age: 45 Year
  Sex: Male
  Weight: 89.55 kg

DRUGS (2)
  1. CIPROFLOXACIN [Suspect]
     Active Substance: CIPROFLOXACIN
  2. FLAGYL [Suspect]
     Active Substance: METRONIDAZOLE\METRONIDAZOLE HYDROCHLORIDE

REACTIONS (8)
  - Pyrexia [None]
  - Malaise [None]
  - Nausea [None]
  - Hyperhidrosis [None]
  - Skin burning sensation [None]
  - Fatigue [None]
  - Neuropathy peripheral [None]
  - Autonomic nervous system imbalance [None]

NARRATIVE: CASE EVENT DATE: 20211007
